FAERS Safety Report 6613885-5 (Version None)
Quarter: 2010Q1

REPORT INFORMATION
  Report Type: 
  Country: None (occurrence: None)
  Receive Date: 20100304
  Receipt Date: 20100301
  Transmission Date: 20100710
  Serious: Yes (Death, Hospitalization)
  Sender: FDA-Public Use
  Company Number: A0847626A

PATIENT
  Age: 51 Year
  Sex: Male
  Weight: 130.5 kg

DRUGS (1)
  1. AVANDIA [Suspect]
     Dosage: 8MG UNKNOWN
     Route: 048
     Dates: start: 19990101, end: 20070101

REACTIONS (9)
  - BLOOD GLUCOSE INCREASED [None]
  - CARDIAC ARREST [None]
  - CARDIAC FAILURE CONGESTIVE [None]
  - CARDIOMYOPATHY [None]
  - HYPERSENSITIVITY [None]
  - LIVER INJURY [None]
  - LUNG DISORDER [None]
  - RENAL FAILURE [None]
  - VENTRICULAR FIBRILLATION [None]
